FAERS Safety Report 6243357-1 (Version None)
Quarter: 2009Q2

REPORT INFORMATION
  Report Type: 
  Country: None (occurrence: None)
  Receive Date: 20090622
  Receipt Date: 20090609
  Transmission Date: 20091009
  Serious: Yes (Hospitalization)
  Sender: FDA-Public Use
  Company Number: 2009-02319

PATIENT
  Age: 68 Year
  Sex: Male
  Weight: 65 kg

DRUGS (7)
  1. VELCADE [Suspect]
     Indication: MULTIPLE MYELOMA
     Dosage: 1.3 MG/M2, INTRAVENOUS
     Route: 042
     Dates: start: 20080119, end: 20090122
  2. ACYCLOVIR [Concomitant]
  3. DEXAMETHASONE [Concomitant]
  4. ENOXAPARIN SODIUM [Concomitant]
  5. OMEPRAZOLE [Concomitant]
  6. PAMIDRONATE DISODIUM [Concomitant]
  7. SENNA (SENNA) [Concomitant]

REACTIONS (3)
  - DISEASE PROGRESSION [None]
  - INAPPROPRIATE ANTIDIURETIC HORMONE SECRETION [None]
  - MULTIPLE MYELOMA [None]
